FAERS Safety Report 8181315-0 (Version None)
Quarter: 2012Q1

REPORT INFORMATION
  Report Type: 
  Country: None (occurrence: None)
  Receive Date: 20120302
  Receipt Date: 20120227
  Transmission Date: 20120608
  Serious: No
  Sender: FDA-Public Use
  Company Number: US-PFIZER INC-2012051692

PATIENT
  Sex: Female
  Weight: 85.714 kg

DRUGS (7)
  1. LOPRESSOR [Concomitant]
     Indication: HYPERTENSION
     Dosage: 50 MG, 3X/DAY
  2. EPIPEN [Concomitant]
     Indication: IODINE ALLERGY
  3. VFEND [Suspect]
     Indication: BRONCHOPULMONARY ASPERGILLOSIS
     Dosage: 200 MG, 2X/DAY
     Route: 048
     Dates: start: 20120223, end: 20120226
  4. KEFLEX [Suspect]
     Dosage: UNK
     Route: 048
  5. DIOVAN HCT [Concomitant]
     Indication: HYPERTENSION
     Dosage: 160 /25 MG, DAILY
  6. EPIPEN [Concomitant]
     Indication: DRUG HYPERSENSITIVITY
     Dosage: UNK
  7. EPIPEN [Concomitant]
     Indication: FOOD ALLERGY

REACTIONS (5)
  - OEDEMA MOUTH [None]
  - HYPERSENSITIVITY [None]
  - DYSPEPSIA [None]
  - MUSCULOSKELETAL CHEST PAIN [None]
  - VOMITING [None]
